FAERS Safety Report 11628785 (Version 1)
Quarter: 2015Q4

REPORT INFORMATION
  Report Type: Spontaneous
  Country: US (occurrence: None)
  Receive Date: 20151013
  Receipt Date: 20151013
  Transmission Date: 20160304
  Serious: No
  Sender: FDA-Public Use
  Company Number: None

PATIENT
  Age: 26 Year
  Sex: Female

DRUGS (1)
  1. MAKENA [Suspect]
     Active Substance: HYDROXYPROGESTERONE CAPROATE
     Indication: POSTPONEMENT OF PRETERM DELIVERY
     Route: 030
     Dates: start: 20150722, end: 20150909

REACTIONS (3)
  - Treatment failure [None]
  - Premature delivery [None]
  - Exposure during pregnancy [None]

NARRATIVE: CASE EVENT DATE: 20150909
